FAERS Safety Report 4596176-6 (Version None)
Quarter: 2005Q1

REPORT INFORMATION
  Report Type: 
  Country: None (occurrence: None)
  Receive Date: 20050225
  Receipt Date: 20050212
  Transmission Date: 20050727
  Serious: Yes (Disabling)
  Sender: FDA-Public Use
  Company Number: HQWYE338314FEB05

PATIENT
  Age: 15 Year
  Sex: Female
  Weight: 65.38 kg

DRUGS (4)
  1. EFFEXOR XR [Suspect]
     Indication: DYSTHYMIC DISORDER
     Dosage: SEE IMAGE,ORAL
     Route: 048
     Dates: start: 20050101, end: 20050207
  2. EFFEXOR XR [Suspect]
     Indication: DYSTHYMIC DISORDER
     Dosage: SEE IMAGE,ORAL
     Route: 048
     Dates: start: 20050208
  3. METOCLOPRAMIDE [Concomitant]
  4. ALLEGRA [Concomitant]

REACTIONS (12)
  - BLOOD PRESSURE INCREASED [None]
  - CIRCADIAN RHYTHM SLEEP DISORDER [None]
  - DEPRESSED LEVEL OF CONSCIOUSNESS [None]
  - FATIGUE [None]
  - GASTROENTERITIS VIRAL [None]
  - HEART RATE INCREASED [None]
  - HYPOAESTHESIA [None]
  - HYPOTENSION [None]
  - IRRITABILITY [None]
  - SEDATION [None]
  - SOMNOLENCE [None]
  - VOMITING [None]
